FAERS Safety Report 5911773-0 (Version None)
Quarter: 2008Q4

REPORT INFORMATION
  Report Type: 
  Country: None (occurrence: None)
  Receive Date: 20081003
  Receipt Date: 20080911
  Transmission Date: 20090506
  Serious: Yes (Other)
  Sender: FDA-Public Use
  Company Number: S200800441

PATIENT
  Age: 50 Year
  Sex: Male

DRUGS (3)
  1. DANTRIUM [Suspect]
     Indication: NEUROLEPTIC MALIGNANT SYNDROME
     Dosage: 75 MG/DAY/50 MG/DAY
  2. DANTRIUM [Suspect]
     Indication: NEUROLEPTIC MALIGNANT SYNDROME
     Dosage: 75 MG/DAY/50 MG/DAY
  3. PHENYTOIN 250 MG/DAY DR NI TO NI [Concomitant]

REACTIONS (9)
  - CEREBROVASCULAR DISORDER [None]
  - GRAND MAL CONVULSION [None]
  - INSOMNIA [None]
  - MENINGITIS [None]
  - NEOPLASM [None]
  - PNEUMATOSIS INTESTINALIS [None]
  - REFUSAL OF TREATMENT BY PATIENT [None]
  - STATUS EPILEPTICUS [None]
  - VOMITING [None]
